FAERS Safety Report 5074969-9 (Version None)
Quarter: 2006Q3

REPORT INFORMATION
  Report Type: 
  Country: None (occurrence: None)
  Receive Date: 20060804
  Receipt Date: 20060719
  Transmission Date: 20061208
  Serious: Yes (Death)
  Sender: FDA-Public Use
  Company Number: 29575

PATIENT
  Age: 2 Year
  Sex: Female

DRUGS (3)
  1. CALCIUM DISODIUM VERSENATE [Suspect]
     Indication: METAL POISONING
     Dosage: 300 MG IN 100 ML NORMAL SALINE AT 25 ML/HR (1 TOTAL), INTRAVENOUS
     Route: 042
     Dates: start: 20050228, end: 20050228
  2. ORAL SUCCIMER [Suspect]
     Indication: METAL POISONING
     Dosage: 200 MG (1 TOTAL), ORAL
     Route: 048
     Dates: start: 20050228, end: 20050228
  3. NA2EDTA (INJECTION FOR INFUSION) [Suspect]
     Indication: METAL POISONING
     Dosage: 1 TOTAL, INTRAVENOUS
     Route: 042
     Dates: start: 20050301, end: 20050301

REACTIONS (7)
  - ANAEMIA [None]
  - BLOOD LEAD INCREASED [None]
  - CARDIAC ARREST [None]
  - CARDIO-RESPIRATORY ARREST [None]
  - HYPOCALCAEMIA [None]
  - HYPOTONIA [None]
  - WRONG DRUG ADMINISTERED [None]
